FAERS Safety Report 8936323 (Version 1)
Quarter: 2012Q4

REPORT INFORMATION
  Report Type: 
  Country: US (occurrence: US)
  Receive Date: 20121130
  Receipt Date: 20121130
  Transmission Date: 20130627
  Serious: No
  Sender: FDA-Public Use
  Company Number: US-PFIZER INC-2012300893

PATIENT
  Sex: Female

DRUGS (2)
  1. NEURONTIN [Suspect]
     Indication: SHINGLES
     Dosage: 300 mg, 3x/day
  2. NEURONTIN [Suspect]
     Dosage: 300 mg, 1x/day

REACTIONS (2)
  - Pain [Unknown]
  - Insomnia [Unknown]
